FAERS Safety Report 18160650 (Version 3)
Quarter: 2020Q3

REPORT INFORMATION
  Report Type: Other
  Country: CO (occurrence: CO)
  Receive Date: 20200818
  Receipt Date: 20200907
  Transmission Date: 20201103
  Serious: Yes (Other)
  Sender: FDA-Public Use
  Company Number: CO-ROCHE-2660710

PATIENT
  Age: 52 Year
  Sex: Female

DRUGS (2)
  1. XOLAIR [Suspect]
     Active Substance: OMALIZUMAB
     Route: 058
     Dates: end: 20200723
  2. XOLAIR [Suspect]
     Active Substance: OMALIZUMAB
     Indication: ASTHMA
     Route: 058
     Dates: start: 20190720

REACTIONS (17)
  - Chest pain [Unknown]
  - Malaise [Not Recovered/Not Resolved]
  - Pneumonia [Unknown]
  - Anosmia [Unknown]
  - Feeling abnormal [Not Recovered/Not Resolved]
  - COVID-19 [Unknown]
  - Dysphonia [Unknown]
  - Speech disorder [Unknown]
  - Application site pain [Recovered/Resolved]
  - Abdominal pain upper [Unknown]
  - Skin exfoliation [Unknown]
  - Fatigue [Not Recovered/Not Resolved]
  - Pain [Unknown]
  - Application site inflammation [Recovered/Resolved]
  - Headache [Unknown]
  - Pyrexia [Unknown]
  - Pain in extremity [Unknown]

NARRATIVE: CASE EVENT DATE: 202007
